FAERS Safety Report 5690564-2 (Version None)
Quarter: 2008Q2

REPORT INFORMATION
  Report Type: 
  Country: None (occurrence: None)
  Receive Date: 20080401
  Receipt Date: 19840608
  Transmission Date: 20081010
  Serious: Yes (Death, Other)
  Sender: FDA-Public Use
  Company Number: US-ROCHE-840200794001

PATIENT
  Age: 58 Year
  Sex: Female

DRUGS (1)
  1. VALIUM [Suspect]
     Route: 048

REACTIONS (4)
  - ARTERIOSCLEROSIS [None]
  - DEATH [None]
  - OEDEMA [None]
  - PULMONARY CONGESTION [None]
